FAERS Safety Report 4504327-4 (Version None)
Quarter: 2004Q4

REPORT INFORMATION
  Report Type: 
  Country: None (occurrence: None)
  Receive Date: 20041118
  Receipt Date: 20040811
  Transmission Date: 20050328
  Serious: Yes (Hospitalization)
  Sender: FDA-Public Use
  Company Number: 200412602JP

PATIENT
  Age: 60 Year
  Sex: Male

DRUGS (2)
  1. KETEK [Suspect]
     Route: 048
     Dates: start: 20040501
  2. MEROPEN [Suspect]
     Indication: PYREXIA
     Route: 041
     Dates: start: 20040508, end: 20040508

REACTIONS (9)
  - ANTINUCLEAR ANTIBODY POSITIVE [None]
  - ASTHMA [None]
  - BLOOD IMMUNOGLOBULIN G INCREASED [None]
  - COLLAGEN DISORDER [None]
  - GASTRIC CANCER [None]
  - IMMUNE SYSTEM DISORDER [None]
  - NEPHRITIS INTERSTITIAL [None]
  - RED BLOOD CELL SEDIMENTATION RATE INCREASED [None]
  - UVEITIS [None]
